FAERS Safety Report 21264177 (Version 1)
Quarter: 2022Q3

REPORT INFORMATION
  Report Type: Report from Study
  Country: NL (occurrence: None)
  Receive Date: 20220829
  Receipt Date: 20220829
  Transmission Date: 20221027
  Serious: Yes (Other)
  Sender: FDA-Public Use
  Company Number: NL-ROCHE-3168234

PATIENT
  Age: 66 Year
  Sex: Female

DRUGS (3)
  1. COBIMETINIB [Suspect]
     Active Substance: COBIMETINIB
     Indication: Non-small cell lung cancer
     Dosage: MOST RECENT ADMINISTRATION ON 15/AUG/2022.?NUMBER OF LAST COURSE GIVEN WAS 4.
     Route: 048
     Dates: start: 20220504
  2. VEMURAFENIB [Suspect]
     Active Substance: VEMURAFENIB
     Indication: Non-small cell lung cancer
     Dosage: MOST RECENT ADMINISTRATION ON 22/AUG/2022.?NUMBER OF LAST COURSE GIVEN WAS 4.
     Route: 048
     Dates: start: 20220504
  3. ITRACONAZOLE [Concomitant]
     Active Substance: ITRACONAZOLE
     Dates: end: 20220822

REACTIONS (1)
  - Ejection fraction decreased [Unknown]

NARRATIVE: CASE EVENT DATE: 20220822
